FAERS Safety Report 19611442 (Version 1)
Quarter: 2021Q3

REPORT INFORMATION
  Report Type: Report from Study
  Country: US (occurrence: US)
  Receive Date: 20210726
  Receipt Date: 20210726
  Transmission Date: 20211014
  Serious: Yes (Other)
  Sender: FDA-Public Use
  Company Number: US-OTSUKA-2021_006854

PATIENT
  Age: 58 Year
  Sex: Male
  Weight: 76.2 kg

DRUGS (8)
  1. CIPROFLOXACIN. [Concomitant]
     Active Substance: CIPROFLOXACIN
     Indication: ANTIBIOTIC THERAPY
     Dosage: 500 MG, BID
     Route: 065
  2. XANAX [Concomitant]
     Active Substance: ALPRAZOLAM
     Indication: ANXIETY
     Dosage: 0.5 MG PRN
     Route: 065
  3. PREGABALIN. [Concomitant]
     Active Substance: PREGABALIN
     Indication: PAIN
     Dosage: 100 MG, BID
     Route: 065
  4. CANNABIDIOL [Concomitant]
     Active Substance: CANNABIDIOL
     Indication: PRODUCT USED FOR UNKNOWN INDICATION
     Dosage: DAILY
     Route: 065
  5. CEDAZURIDINE AND DECITABINE [Suspect]
     Active Substance: CEDAZURIDINE\DECITABINE
     Dosage: 1 TAB (35 MG DECITABINE AND 100 MG CEDAZURIDINE), QD 1?5 DAYS EVERY 28 DAY CYCLE
     Route: 048
     Dates: start: 20210207
  6. OXYCODONE [Concomitant]
     Active Substance: OXYCODONE
     Indication: PRODUCT USED FOR UNKNOWN INDICATION
     Dosage: 10 MG
     Route: 065
  7. CEDAZURIDINE AND DECITABINE [Suspect]
     Active Substance: CEDAZURIDINE\DECITABINE
     Indication: MYELODYSPLASTIC SYNDROME
     Dosage: 1 TAB (35 MG DECITABINE AND 100 MG CEDAZURIDINE), QD 1?5 DAYS EVERY 28 DAY CYCLE
     Route: 048
     Dates: start: 20200926
  8. CLINDAMYCIN. [Concomitant]
     Active Substance: CLINDAMYCIN
     Indication: ANTIBIOTIC THERAPY
     Dosage: 150 MG, TID
     Route: 065

REACTIONS (12)
  - Haemorrhoids [Unknown]
  - Weight decreased [Unknown]
  - Diverticulitis [Unknown]
  - Fatigue [Unknown]
  - Sinusitis [Unknown]
  - Chills [Unknown]
  - Therapy interrupted [Unknown]
  - Headache [Unknown]
  - Pain in extremity [Unknown]
  - Hyperhidrosis [Unknown]
  - Abdominal discomfort [Not Recovered/Not Resolved]
  - Decreased appetite [Unknown]

NARRATIVE: CASE EVENT DATE: 20200928
